FAERS Safety Report 10251614 (Version 1)
Quarter: 2014Q2

REPORT INFORMATION
  Report Type: Spontaneous
  Country: US (occurrence: US)
  Receive Date: 20140623
  Receipt Date: 20140623
  Transmission Date: 20141212
  Serious: No
  Sender: FDA-Public Use
  Company Number: US-009507513-1406USA006129

PATIENT
  Sex: Female

DRUGS (2)
  1. NEXPLANON [Suspect]
     Indication: CONTRACEPTION
     Dosage: 1 ROD, UNK
     Route: 059
  2. NEXPLANON [Suspect]
     Dosage: 1 ROD, UNK
     Route: 059

REACTIONS (3)
  - Infection [Unknown]
  - Implant site erythema [Unknown]
  - Device expulsion [Recovered/Resolved]
